FAERS Safety Report 9355926 (Version 2)
Quarter: 2013Q2

REPORT INFORMATION
  Report Type: Spontaneous
  Country: IT (occurrence: None)
  Receive Date: 20130614
  Receipt Date: 20130621
  Transmission Date: 20140414
  Serious: Yes (Hospitalization, Other)
  Sender: FDA-Public Use
  Company Number: AUR-APL-2013-04770

PATIENT
  Age: 91 Year
  Sex: Female

DRUGS (9)
  1. MIRTAZAPINE (MIRTAZAPINE) [Suspect]
     Indication: HALLUCINATION
     Route: 048
     Dates: start: 20130419, end: 20130419
  2. SEROQUEL (QUETIAPINE FUMARATE) [Suspect]
     Indication: HALLUCINATION
     Route: 048
     Dates: start: 20130419, end: 20130419
  3. LORAZEPAM [Suspect]
     Indication: HALLUCINATION
     Route: 048
     Dates: start: 20130419, end: 20130419
  4. TRIATEC [Concomitant]
  5. INDERAL [Concomitant]
  6. LYRICA (PREGABALIN) [Concomitant]
  7. MIRAPEXIN (PRAMIPEXOLE DIHYDROCHLORIDE) [Concomitant]
  8. CONTRAMAL [Concomitant]
  9. MADOPAR [Concomitant]

REACTIONS (3)
  - Diarrhoea [None]
  - Sopor [None]
  - Somnolence [None]
